FAERS Safety Report 4965157-2 (Version None)
Quarter: 2006Q2

REPORT INFORMATION
  Report Type: 
  Country: None (occurrence: None)
  Receive Date: 20060406
  Receipt Date: 20060208
  Transmission Date: 20061013
  Serious: Yes (Hospitalization)
  Sender: FDA-Public Use
  Company Number: JP-BOEHRINGER INGELHEIM PHARMACEUTICALS, INC.-2006-BP-01652YA

PATIENT
  Sex: Male
  Weight: 70 kg

DRUGS (5)
  1. HARNAL [Suspect]
     Indication: BENIGN PROSTATIC HYPERPLASIA
     Route: 048
     Dates: start: 20060127, end: 20060206
  2. LEXIN [Suspect]
     Route: 048
     Dates: start: 20051227, end: 20060207
  3. KETOPROFEN [Concomitant]
     Dates: start: 20060126, end: 20060127
  4. BLOPRESS [Concomitant]
     Dates: start: 20051227, end: 20060207
  5. PROTECADIN [Concomitant]
     Route: 048
     Dates: start: 20051227, end: 20060207

REACTIONS (1)
  - DRUG ERUPTION [None]
